FAERS Safety Report 8025706-7 (Version None)
Quarter: 2012Q1

REPORT INFORMATION
  Report Type: 
  Country: None (occurrence: None)
  Receive Date: 20120105
  Receipt Date: 20120101
  Transmission Date: 20120608
  Serious: No
  Sender: FDA-Public Use
  Company Number: US-B.I. PHARMACEUTICALS,INC./RIDGEFIELD-2012-BP-00071BP

PATIENT
  Sex: Male

DRUGS (4)
  1. OMEPRAZOLE [Concomitant]
     Indication: DYSPEPSIA
  2. TRAMADOL HCL [Concomitant]
     Indication: PAIN
  3. ZANTAC [Suspect]
     Indication: DYSPEPSIA
     Route: 048
     Dates: start: 20111201
  4. ABILIFY [Concomitant]
     Indication: DEPRESSION

REACTIONS (1)
  - DYSPEPSIA [None]
